FAERS Safety Report 12839851 (Version 2)
Quarter: 2017Q2

REPORT INFORMATION
  Report Type: Spontaneous
  Country: IE (occurrence: IE)
  Receive Date: 20161012
  Receipt Date: 20170531
  Transmission Date: 20170830
  Serious: Yes (Disabling, Other)
  Sender: FDA-Public Use
  Company Number: IE-PFIZER INC-2016452964

PATIENT
  Age: 58 Year
  Sex: Female
  Weight: 64.4 kg

DRUGS (7)
  1. ZIMOCLONE [Concomitant]
     Dosage: 75 MG, 1X/DAY (AT NIGHT)
  2. ELTROXIN [Concomitant]
     Active Substance: LEVOTHYROXINE
     Dosage: 100 MG, 1X/DAY
     Route: 048
  3. ZOMETA [Concomitant]
     Active Substance: ZOLEDRONIC ACID
     Dosage: 4 MG, FOR 6 WEEKS
     Route: 042
  4. SUTENT [Suspect]
     Active Substance: SUNITINIB MALATE
     Dosage: 25, CYCLIC (2/1 AS SCHEDULE)
     Route: 048
     Dates: end: 20120628
  5. MAXOLON [Concomitant]
     Active Substance: METOCLOPRAMIDE HYDROCHLORIDE
     Dosage: 10 MG, AS NEEDED
     Route: 048
  6. SUTENT [Suspect]
     Active Substance: SUNITINIB MALATE
     Dosage: 25, CYCLIC (4/2 AS SCHEDULE)
     Route: 048
  7. SUTENT [Suspect]
     Active Substance: SUNITINIB MALATE
     Indication: MEDULLARY THYROID CANCER
     Dosage: 37.5, CYCLIC (ONCE DAILY ON A 4/2 SCHEDULE)
     Route: 048
     Dates: start: 20120613

REACTIONS (11)
  - Tumour pain [Unknown]
  - Nausea [Recovered/Resolved]
  - Fatigue [Recovered/Resolved]
  - Yellow skin [Recovered/Resolved]
  - Vomiting [Recovered/Resolved]
  - Epistaxis [Unknown]
  - Dysgeusia [Unknown]
  - Thrombocytopenia [Recovered/Resolved]
  - Neutropenia [Recovered/Resolved]
  - Constipation [Unknown]
  - Influenza like illness [Unknown]

NARRATIVE: CASE EVENT DATE: 201206
